FAERS Safety Report 6690149-5 (Version None)
Quarter: 2010Q2

REPORT INFORMATION
  Report Type: 
  Country: None (occurrence: None)
  Receive Date: 20100421
  Receipt Date: 20100419
  Transmission Date: 20101027
  Serious: Yes (Hospitalization)
  Sender: FDA-Public Use
  Company Number: US-ASTRAZENECA-2010SE17172

PATIENT
  Age: 41 Year
  Sex: Female
  Weight: 67.1 kg

DRUGS (2)
  1. SEROQUEL [Suspect]
     Indication: BIPOLAR DISORDER
     Dosage: 100MG-400MG ONCE DAILY
     Route: 048
  2. SEROQUEL [Suspect]
     Route: 048
     Dates: start: 20090101

REACTIONS (3)
  - HEPATITIS C [None]
  - LOSS OF CONSCIOUSNESS [None]
  - RED BLOOD CELL COUNT DECREASED [None]
